FAERS Safety Report 8406911-4 (Version None)
Quarter: 2012Q2

REPORT INFORMATION
  Report Type: 
  Country: None (occurrence: None)
  Receive Date: 20120604
  Receipt Date: 20120524
  Transmission Date: 20120825
  Serious: Yes (Other)
  Sender: FDA-Public Use
  Company Number: US-BAYER-2012-054371

PATIENT
  Sex: Male

DRUGS (4)
  1. XARELTO [Suspect]
     Indication: CEREBROVASCULAR ACCIDENT PROPHYLAXIS
  2. PLAVIX [Suspect]
     Indication: ILL-DEFINED DISORDER
     Dosage: 75 MG, UNK
  3. XARELTO [Suspect]
     Indication: ATRIAL FIBRILLATION
     Dosage: 20 MG, UNK
     Route: 048
  4. ASPIRIN [Suspect]
     Indication: ILL-DEFINED DISORDER
     Dosage: 325 MG, UNK

REACTIONS (2)
  - FAECES DISCOLOURED [None]
  - HAEMORRHAGE [None]
